FAERS Safety Report 7033075-4 (Version None)
Quarter: 2010Q4

REPORT INFORMATION
  Report Type: 
  Country: None (occurrence: None)
  Receive Date: 20101007
  Receipt Date: 20101001
  Transmission Date: 20110411
  Serious: Yes (Other)
  Sender: FDA-Public Use
  Company Number: JP-PFIZER INC-2010124983

PATIENT
  Age: 51 Year
  Sex: Female

DRUGS (1)
  1. ZITHROMAC [Suspect]
     Indication: PERIODONTITIS
     Dosage: 250 MG/DAY
     Route: 048
     Dates: start: 20100928, end: 20100928

REACTIONS (4)
  - HYPERVENTILATION [None]
  - HYPOAESTHESIA [None]
  - NAUSEA [None]
  - PERIPHERAL COLDNESS [None]
